FAERS Safety Report 8310830 (Version 2)
Quarter: 2013Q2

REPORT INFORMATION
  Report Type: Report from Study
  Country: VE (occurrence: VE)
  Receive Date: 20111226
  Receipt Date: 20130520
  Transmission Date: 20140414
  Serious: Yes (Death, Hospitalization)
  Sender: FDA-Public Use
  Company Number: PHHY2011VE111651

PATIENT
  Age: 85 Year
  Sex: Male

DRUGS (1)
  1. ACLASTA [Suspect]
     Indication: OSTEOPOROSIS
     Dosage: 5 MG/100ML ANNUALLY
     Route: 042
     Dates: start: 2009

REACTIONS (6)
  - Respiratory failure [Fatal]
  - Respiratory arrest [Fatal]
  - Pulmonary oedema [Not Recovered/Not Resolved]
  - Oesophageal obstruction [Unknown]
  - Vomiting [Recovered/Resolved]
  - Feeling abnormal [Unknown]
